FAERS Safety Report 24878545 (Version 2)
Quarter: 2025Q1

REPORT INFORMATION
  Report Type: Spontaneous
  Country: US (occurrence: US)
  Receive Date: 20250123
  Receipt Date: 20250124
  Transmission Date: 20250409
  Serious: Yes (Death)
  Sender: PFIZER
  Company Number: US-PFIZER INC-202500015895

PATIENT

DRUGS (1)
  1. NIVESTYM [Suspect]
     Active Substance: FILGRASTIM-AAFI

REACTIONS (1)
  - Death [Fatal]
